FAERS Safety Report 6409485-2 (Version None)
Quarter: 2009Q4

REPORT INFORMATION
  Report Type: 
  Country: None (occurrence: None)
  Receive Date: 20091013
  Receipt Date: 20090928
  Transmission Date: 20100525
  Serious: Yes (Hospitalization)
  Sender: FDA-Public Use
  Company Number: 20090928CINRY1159

PATIENT
  Age: 54 Year
  Sex: Female

DRUGS (4)
  1. CINRYZE [Suspect]
     Indication: HEREDITARY ANGIOEDEMA
     Dosage: (500 UNIT, EVERY OTHER DAY), INTRAVENOUS
     Route: 042
     Dates: start: 20090501
  2. CINRYZE [Suspect]
     Indication: PROPHYLAXIS
     Dosage: (500 UNIT, EVERY OTHER DAY), INTRAVENOUS
     Route: 042
     Dates: start: 20090501
  3. CINRYZE [Suspect]
     Indication: HEREDITARY ANGIOEDEMA
     Dosage: (500 UNIT, EVERY OTHER DAY), INTRAVENOUS
     Route: 042
     Dates: start: 20090701
  4. CINRYZE [Suspect]
     Indication: PROPHYLAXIS
     Dosage: (500 UNIT, EVERY OTHER DAY), INTRAVENOUS
     Route: 042
     Dates: start: 20090701

REACTIONS (2)
  - COLITIS ISCHAEMIC [None]
  - FATIGUE [None]
